FAERS Safety Report 14511933 (Version 1)
Quarter: 2018Q1

REPORT INFORMATION
  Report Type: Spontaneous
  Country: US (occurrence: US)
  Receive Date: 20180209
  Receipt Date: 20180209
  Transmission Date: 20180509
  Serious: Yes (Life-Threatening, Disabling)
  Sender: FDA-Public Use
  Company Number: None

PATIENT
  Age: 54 Year
  Sex: Male
  Weight: 73.03 kg

DRUGS (8)
  1. HYDROCHLOROTHIAZIDE. [Concomitant]
     Active Substance: HYDROCHLOROTHIAZIDE
  2. ZOLPIDEM [Suspect]
     Active Substance: ZOLPIDEM\ZOLPIDEM TARTRATE
     Dosage: 10MG 1 TABLET EVERY NIGHT
     Dates: start: 20171120, end: 20171121
  3. AMOXICILLIN. [Concomitant]
     Active Substance: AMOXICILLIN
  4. AMITRIPTYLINE [Suspect]
     Active Substance: AMITRIPTYLINE
  5. MELANTONIN [Concomitant]
  6. LORAZEPAM 0.5MG TABLETS [Suspect]
     Active Substance: LORAZEPAM
     Indication: PANIC ATTACK
     Route: 048
  7. AMLODIPINE BESYLATE. [Concomitant]
     Active Substance: AMLODIPINE BESYLATE
  8. LORAZEPAM 0.5MG TABLETS [Suspect]
     Active Substance: LORAZEPAM
     Indication: GENERALISED ANXIETY DISORDER
     Route: 048

REACTIONS (4)
  - Blood triglycerides increased [None]
  - Blood cholesterol increased [None]
  - Glycosylated haemoglobin increased [None]
  - Hepatic enzyme increased [None]

NARRATIVE: CASE EVENT DATE: 20171120
